FAERS Safety Report 26071624 (Version 1)
Quarter: 2025Q4

REPORT INFORMATION
  Report Type: Spontaneous
  Country: MX (occurrence: MX)
  Receive Date: 20251120
  Receipt Date: 20251120
  Transmission Date: 20260117
  Serious: Yes (Hospitalization)
  Sender: JOHNSON AND JOHNSON
  Company Number: MX-JNJFOC-20251155079

PATIENT
  Age: 65 Year
  Sex: Male

DRUGS (5)
  1. DARZALEX [Suspect]
     Active Substance: DARATUMUMAB
     Indication: Monoclonal gammopathy
     Dosage: IN 500 CC OF 0.9% DEXTROSE SOLUTION OVER 8 HOURS, SINGLE DOSE
     Route: 040
     Dates: start: 20250521
  2. DEXAMETHASONE [Suspect]
     Active Substance: DEXAMETHASONE
     Indication: Monoclonal gammopathy
     Route: 048
  3. LENALIDOMIDE [Suspect]
     Active Substance: LENALIDOMIDE
     Indication: Monoclonal gammopathy
     Route: 048
     Dates: start: 20250604
  4. LENALIDOMIDE [Suspect]
     Active Substance: LENALIDOMIDE
     Route: 048
  5. ASPIRIN [Concomitant]
     Active Substance: ASPIRIN
     Indication: Product used for unknown indication

REACTIONS (5)
  - Monoclonal gammopathy [Unknown]
  - Hypertension [Unknown]
  - Rosacea [Unknown]
  - Chronic kidney disease [Unknown]
  - Off label use [Unknown]

NARRATIVE: CASE EVENT DATE: 20250604
